FAERS Safety Report 9686262 (Version 2)
Quarter: 2015Q4

REPORT INFORMATION
  Report Type: Spontaneous
  Country: GB (occurrence: GB)
  Receive Date: 20131113
  Receipt Date: 20151210
  Transmission Date: 20160305
  Serious: Yes (Other)
  Sender: FDA-Public Use
  Company Number: GB-ACTAVIS-2013-20843

PATIENT
  Age: 29 Year
  Sex: Male
  Weight: 72 kg

DRUGS (2)
  1. FINASTERIDE (UNKNOWN) [Suspect]
     Active Substance: FINASTERIDE
     Indication: ALOPECIA
     Dosage: 0.5 MG, UNK (TAKEN FOR 4-5 WEEKS)
     Route: 048
  2. FINASTERIDE (UNKNOWN) [Suspect]
     Active Substance: FINASTERIDE
     Indication: OFF LABEL USE

REACTIONS (4)
  - Depression [Recovering/Resolving]
  - Genital hypoaesthesia [Not Recovered/Not Resolved]
  - Loss of libido [Not Recovered/Not Resolved]
  - Genital paraesthesia [Not Recovered/Not Resolved]

NARRATIVE: CASE EVENT DATE: 20120201
